FAERS Safety Report 21805336 (Version 1)
Quarter: 2023Q1

REPORT INFORMATION
  Report Type: Spontaneous
  Country: US (occurrence: None)
  Receive Date: 20230102
  Receipt Date: 20230102
  Transmission Date: 20230418
  Serious: Yes (Hospitalization, Other)
  Sender: FDA-Public Use
  Company Number: US-Unichem Pharmaceuticals (USA) Inc-UCM202212-001363

PATIENT
  Age: 77 Year
  Sex: Male

DRUGS (1)
  1. AMIODARONE HYDROCHLORIDE [Suspect]
     Active Substance: AMIODARONE HYDROCHLORIDE
     Indication: Product used for unknown indication
     Dosage: 200 ML SOLUTION (1.8 MG/ML) IN 5% DEXTROSE
     Route: 042

REACTIONS (4)
  - Skin necrosis [Recovered/Resolved with Sequelae]
  - Sensory loss [Recovered/Resolved with Sequelae]
  - Soft tissue necrosis [Recovered/Resolved with Sequelae]
  - Infusion site eschar [Recovered/Resolved with Sequelae]
